FAERS Safety Report 23223271 (Version 2)
Quarter: 2023Q4

REPORT INFORMATION
  Report Type: Spontaneous
  Country: FR (occurrence: FR)
  Receive Date: 20231123
  Receipt Date: 20231223
  Transmission Date: 20240110
  Serious: Yes (Hospitalization)
  Sender: FDA-Public Use
  Company Number: FR-TEVA-2023-FR-2949160

PATIENT
  Age: 5 Decade

DRUGS (2)
  1. COPAXONE [Suspect]
     Active Substance: GLATIRAMER ACETATE
     Indication: Multiple sclerosis
     Dosage: DOSAGE TEXT: 40 MG/ML
     Route: 065
  2. COPAXONE [Suspect]
     Active Substance: GLATIRAMER ACETATE
     Dosage: DOSAGE TEXT: 40 MG/ML
     Route: 065
     Dates: end: 2021

REACTIONS (1)
  - Malaise [Recovered/Resolved]
